FAERS Safety Report 22598840 (Version 2)
Quarter: 2023Q2

REPORT INFORMATION
  Report Type: Report from Study
  Country: US (occurrence: None)
  Receive Date: 20230614
  Receipt Date: 20230626
  Transmission Date: 20230721
  Serious: Yes (Death, Hospitalization)
  Sender: FDA-Public Use
  Company Number: US-ROCHE-3365588

PATIENT
  Age: 61 Year
  Sex: Male

DRUGS (5)
  1. BEVACIZUMAB [Suspect]
     Active Substance: BEVACIZUMAB
     Indication: Colorectal cancer
     Dosage: 90 MIN DAY 1 Q14 DAY
     Route: 042
     Dates: start: 20230314, end: 20230525
  2. DKN-01 [Suspect]
     Active Substance: DKN-01
     Indication: Colorectal cancer
     Dosage: 30 MINUTE IV INFUSION (400MG) EVERY TWO WEEKS WITH AN ADDITIONAL LOADING DOSE IN THE FIRST CYCLE OF
     Route: 042
     Dates: start: 20230314, end: 20230523
  3. IRINOTECAN [Suspect]
     Active Substance: IRINOTECAN
     Indication: Colorectal cancer
     Route: 042
     Dates: start: 20230314, end: 20230523
  4. LEUCOVORIN [Suspect]
     Active Substance: LEUCOVORIN
     Indication: Colorectal cancer
     Dosage: 90 MINS
     Route: 042
     Dates: start: 20230314, end: 20230523
  5. FLUOROURACIL [Suspect]
     Active Substance: FLUOROURACIL
     Indication: Colorectal cancer
     Route: 042
     Dates: start: 20230314, end: 20230523

REACTIONS (1)
  - Large intestinal haemorrhage [Fatal]

NARRATIVE: CASE EVENT DATE: 20230525
